FAERS Safety Report 8374172-0 (Version None)
Quarter: 2012Q2

REPORT INFORMATION
  Report Type: 
  Country: None (occurrence: None)
  Receive Date: 20120521
  Receipt Date: 20120514
  Transmission Date: 20120825
  Serious: Yes (Hospitalization, Congenital Anomaly)
  Sender: FDA-Public Use
  Company Number: JP-GLAXOSMITHKLINE-B0798697A

PATIENT
  Sex: Male

DRUGS (1)
  1. FLUTICASONE PROPIONATE [Suspect]
     Indication: ASTHMA
     Route: 064

REACTIONS (10)
  - GENITALIA EXTERNAL AMBIGUOUS [None]
  - DENYS-DRASH SYNDROME [None]
  - GENE MUTATION [None]
  - RENAL FAILURE [None]
  - FOETAL EXPOSURE DURING PREGNANCY [None]
  - RENAL MASS [None]
  - RENAL APLASIA [None]
  - ABDOMINAL DISTENSION [None]
  - NEPHROBLASTOMA [None]
  - HYPOSPADIAS [None]
